FAERS Safety Report 13727891 (Version 2)
Quarter: 2017Q3

REPORT INFORMATION
  Report Type: Spontaneous
  Country: DE (occurrence: DE)
  Receive Date: 20170707
  Receipt Date: 20170724
  Transmission Date: 20171127
  Serious: Yes (Other)
  Sender: FDA-Public Use
  Company Number: DE-JNJFOC-20170700921

PATIENT
  Sex: Female

DRUGS (2)
  1. REGAINE FRAUEN SCHAUM [Suspect]
     Active Substance: MINOXIDIL
     Indication: PRODUCT USED FOR UNKNOWN INDICATION
     Route: 065
  2. REGAINE FRAUEN SCHAUM [Suspect]
     Active Substance: MINOXIDIL
     Route: 065

REACTIONS (1)
  - Deafness [Recovered/Resolved]
